FAERS Safety Report 6481581-3 (Version None)
Quarter: 2009Q4

REPORT INFORMATION
  Report Type: 
  Country: None (occurrence: None)
  Receive Date: 20091208
  Receipt Date: 20091130
  Transmission Date: 20100525
  Serious: Yes (Hospitalization, Other)
  Sender: FDA-Public Use
  Company Number: BR-ABBOTT-09P-020-0600102-00

PATIENT
  Sex: Male
  Weight: 77 kg

DRUGS (13)
  1. HUMIRA [Suspect]
     Indication: RHEUMATOID ARTHRITIS
     Route: 058
     Dates: start: 20080901
  2. METHOTREXATE [Concomitant]
     Indication: RHEUMATOID ARTHRITIS
     Route: 058
     Dates: start: 20080101
  3. LEXATO [Concomitant]
     Indication: RHEUMATOID ARTHRITIS
     Route: 030
     Dates: start: 20080901
  4. LEXATO [Concomitant]
     Indication: OSTEOARTHRITIS
  5. ANESTHESIA [Concomitant]
     Indication: MENISCUS REMOVAL
     Dates: start: 20090801, end: 20090801
  6. DICLOFENAC [Concomitant]
     Indication: PAIN
     Route: 048
     Dates: start: 20080101
  7. ASPIRIN [Concomitant]
     Indication: ANTICOAGULANT THERAPY
     Route: 048
     Dates: start: 20030101
  8. SIMVASTATIN [Concomitant]
     Indication: PROPHYLAXIS
     Route: 048
     Dates: start: 20030101
  9. SIMVASTATIN [Concomitant]
     Indication: BLOOD TRIGLYCERIDES ABNORMAL
  10. SIMVASTATIN [Concomitant]
  11. CEDOR [Concomitant]
     Indication: BLOOD CHOLESTEROL ABNORMAL
     Route: 048
     Dates: start: 20030101
  12. CEDOR [Concomitant]
  13. CEDOR [Concomitant]
     Indication: BLOOD TRIGLYCERIDES ABNORMAL

REACTIONS (5)
  - ARTHRALGIA [None]
  - ARTHRITIS [None]
  - DRUG INEFFECTIVE [None]
  - ERYTHEMA [None]
  - JOINT EFFUSION [None]
